FAERS Safety Report 7940842-9 (Version None)
Quarter: 2011Q4

REPORT INFORMATION
  Report Type: 
  Country: None (occurrence: None)
  Receive Date: 20111128
  Receipt Date: 20111121
  Transmission Date: 20120403
  Serious: Yes (Other)
  Sender: FDA-Public Use
  Company Number: IT-PFIZER INC-2011027910

PATIENT
  Age: 72 Year
  Sex: Female

DRUGS (3)
  1. AROMASIN [Suspect]
     Indication: BREAST CANCER
     Dosage: UNK
     Route: 048
     Dates: start: 20100801
  2. VITAMIN D [Concomitant]
  3. COUMADIN [Concomitant]

REACTIONS (1)
  - LEUKOPENIA [None]
